FAERS Safety Report 13799823 (Version 1)
Quarter: 2017Q3

REPORT INFORMATION
  Report Type: Spontaneous
  Country: US (occurrence: US)
  Receive Date: 20170727
  Receipt Date: 20170727
  Transmission Date: 20171127
  Serious: No
  Sender: FDA-Public Use
  Company Number: None

PATIENT
  Age: 71 Year
  Sex: Female
  Weight: 74.7 kg

DRUGS (12)
  1. DIPHENHYDRAMINE. [Concomitant]
     Active Substance: DIPHENHYDRAMINE
  2. SIMVASTATIN. [Concomitant]
     Active Substance: SIMVASTATIN
  3. OMEGA 3 [Concomitant]
     Active Substance: OMEGA-3 FATTY ACIDS
  4. LISINOPRIL. [Concomitant]
     Active Substance: LISINOPRIL
  5. COQ10 [Concomitant]
     Active Substance: UBIDECARENONE
  6. VITAMIN D3 [Concomitant]
     Active Substance: CHOLECALCIFEROL
  7. VESICARE [Concomitant]
     Active Substance: SOLIFENACIN SUCCINATE
  8. PANTOPRAZOLE [Concomitant]
     Active Substance: PANTOPRAZOLE
  9. MULTIVITAMIN [Concomitant]
     Active Substance: VITAMINS
  10. OXYBUTYNIN ER [Suspect]
     Active Substance: OXYBUTYNIN
     Indication: HYPERTONIC BLADDER
     Dosage: ?          QUANTITY:1 TABLET(S);?
     Route: 048
     Dates: start: 20170321, end: 20170703
  11. TYLENOL [Concomitant]
     Active Substance: ACETAMINOPHEN
  12. FISH OIL [Concomitant]
     Active Substance: FISH OIL

REACTIONS (5)
  - Fear [None]
  - Dysphagia [None]
  - Dry mouth [None]
  - Dry eye [None]
  - Dizziness [None]

NARRATIVE: CASE EVENT DATE: 20170703
